FAERS Safety Report 8760458 (Version 1)
Quarter: 2012Q4

REPORT INFORMATION
  Report Type: Spontaneous
  Country: US (occurrence: None)
  Receive Date: 20120829
  Receipt Date: 20120829
  Transmission Date: 20130627
  Serious: Yes (Hospitalization)
  Sender: FDA-Public Use
  Company Number: None

PATIENT
  Age: 53 Year
  Sex: Female
  Weight: 53.98 kg

DRUGS (4)
  1. GEMCITABINE [Suspect]
     Indication: CHOLANGIOCARCINOMA
     Dates: start: 20120820
  2. OXALIPLATIN [Suspect]
     Route: 042
     Dates: start: 20120821
  3. ERLOTINIB [Suspect]
     Route: 048
     Dates: start: 20120817, end: 20120822
  4. ERLOTINIB [Suspect]
     Dates: start: 20120820, end: 20120825

REACTIONS (2)
  - Nausea [None]
  - Diarrhoea [None]
